FAERS Safety Report 16154538 (Version 2)
Quarter: 2019Q2

REPORT INFORMATION
  Report Type: Spontaneous
  Country: US (occurrence: US)
  Receive Date: 20190403
  Receipt Date: 20190417
  Transmission Date: 20190711
  Serious: No
  Sender: FDA-Public Use
  Company Number: US-TEVA-2019-US-1028880

PATIENT
  Age: 52 Year
  Sex: Female

DRUGS (1)
  1. WATSON METOPROLOL [Suspect]
     Active Substance: METOPROLOL
     Dates: start: 2013

REACTIONS (7)
  - Constipation [Unknown]
  - Oropharyngeal pain [Unknown]
  - Headache [Unknown]
  - Arthralgia [Unknown]
  - Product substitution issue [Unknown]
  - Dizziness [Unknown]
  - Drug ineffective [Unknown]

NARRATIVE: CASE EVENT DATE: 20131031
